FAERS Safety Report 23768408 (Version 1)
Quarter: 2024Q2

REPORT INFORMATION
  Report Type: Spontaneous
  Country: US (occurrence: US)
  Receive Date: 20240422
  Receipt Date: 20240422
  Transmission Date: 20240716
  Serious: No
  Sender: FDA-Public Use
  Company Number: US-MELINTA THERAPEUTICS, LLC-US-MLNT-23-00318

PATIENT
  Sex: Female
  Weight: 76.2 kg

DRUGS (16)
  1. TOPROL XL [Suspect]
     Active Substance: METOPROLOL SUCCINATE
     Indication: Migraine without aura
     Dosage: D/C^D TOPROL XL 25 MG QD CAN RESUME PRN FOR HR INCREASED
     Route: 048
     Dates: end: 20150422
  2. TOPROL XL [Suspect]
     Active Substance: METOPROLOL SUCCINATE
     Indication: Tachycardia
     Dosage: RESUMED TOPROL XL 25 MG QD (PREVENT HA TOO)
     Route: 048
     Dates: start: 20190402, end: 20191009
  3. TOPROL XL [Suspect]
     Active Substance: METOPROLOL SUCCINATE
     Dosage: 50 MILLIGRAM, QD
     Route: 048
     Dates: start: 20191009
  4. TOPROL XL [Suspect]
     Active Substance: METOPROLOL SUCCINATE
     Dosage: CONTINUE TOPROL XL 50 MG 1/2 QD  |  DAILY DOSE UNIT : DOSAGE FORMS  |  UNIT DOSE UNIT : DOSAGE FORMS
     Route: 048
  5. FIORICET [Concomitant]
     Active Substance: ACETAMINOPHEN\BUTALBITAL\CAFFEINE
     Indication: Migraine without aura
     Dosage: NOT PROVIDED.
     Route: 065
     Dates: start: 20151021
  6. MAXALT [Concomitant]
     Active Substance: RIZATRIPTAN BENZOATE
     Indication: Migraine without aura
     Dosage: NOT PROVIDED.
     Route: 065
     Dates: start: 20151021
  7. GOODYS [Concomitant]
     Active Substance: ACETAMINOPHEN\ASPIRIN\CAFFEINE
     Indication: Migraine without aura
     Dosage: NOT PROVIDED.
     Route: 065
  8. NURTEC ODT [Concomitant]
     Active Substance: RIMEGEPANT SULFATE
     Indication: Migraine without aura
     Dosage: 50 MILLIGRAM, PRN
     Route: 048
  9. NEXIUM [Concomitant]
     Active Substance: ESOMEPRAZOLE MAGNESIUM
     Indication: Product used for unknown indication
     Dosage: 1 DOSAGE FORM, QD  |  UNIT DOSE UNIT : DOSAGE FORMS
     Route: 048
     Dates: start: 202108
  10. AMOXIL [Concomitant]
     Active Substance: AMOXICILLIN
     Indication: Product used for unknown indication
     Dosage: TAKE 1 CAPSULE (500 MG TOTAL) BY MOUTH 3 TIMES A DAY FOR 10 DAYS.
     Route: 048
  11. ATIVAN [Concomitant]
     Active Substance: LORAZEPAM
     Indication: Generalised anxiety disorder
     Dosage: USES REGULARLY BID
     Route: 048
     Dates: start: 2009
  12. ATIVAN [Concomitant]
     Active Substance: LORAZEPAM
     Dosage: TAKE 1 TABLET (0.5 MG TOTAL) BY MOUTH EVERY 8 HOURS AS NEEDED FOR ANXIETY
     Route: 048
  13. ZOMIG [Concomitant]
     Active Substance: ZOLMITRIPTAN
     Indication: Migraine without aura
     Dosage: NOT PROVIDED.
     Route: 065
  14. TOPAMAX [Concomitant]
     Active Substance: TOPIRAMATE
     Indication: Migraine without aura
     Dosage: NOT PROVIDED.
     Route: 065
  15. PROPRANOLOL [Concomitant]
     Active Substance: PROPRANOLOL HYDROCHLORIDE
     Indication: Migraine without aura
     Dosage: NOT PROVIDED.
     Route: 065
  16. BUSPAR [Concomitant]
     Active Substance: BUSPIRONE HYDROCHLORIDE
     Indication: Anxiety
     Dosage: 10 MILLIGRAM, Q8H
     Route: 065

REACTIONS (20)
  - Generalised anxiety disorder [Unknown]
  - Gastrooesophageal reflux disease [Unknown]
  - Abdominal pain upper [Unknown]
  - Panic attack [Unknown]
  - Fatigue [Unknown]
  - Increased bronchial secretion [Unknown]
  - Hypertension [Unknown]
  - Tachycardia [Unknown]
  - Abdominal discomfort [Unknown]
  - Migraine [Unknown]
  - Sinus congestion [Unknown]
  - Cough [Unknown]
  - COVID-19 [Unknown]
  - Arthralgia [Unknown]
  - Palpitations [Unknown]
  - Headache [Unknown]
  - Feeling abnormal [Unknown]
  - Off label use [Unknown]
  - Product use issue [Unknown]
  - Off label use [Unknown]

NARRATIVE: CASE EVENT DATE: 20120406
